FAERS Safety Report 7398795-0 (Version None)
Quarter: 2011Q2

REPORT INFORMATION
  Report Type: 
  Country: None (occurrence: None)
  Receive Date: 20110404
  Receipt Date: 20110404
  Transmission Date: 20111010
  Serious: Yes (Other)
  Sender: FDA-Public Use
  Company Number: None

PATIENT
  Age: 76 Year
  Sex: Female
  Weight: 85.2762 kg

DRUGS (1)
  1. ACTOS [Suspect]
     Indication: TYPE 2 DIABETES MELLITUS
     Dosage: 3-4 MONTHS
     Dates: start: 20101111, end: 20110318

REACTIONS (5)
  - THROAT TIGHTNESS [None]
  - WEIGHT INCREASED [None]
  - CHEST DISCOMFORT [None]
  - DYSPNOEA EXERTIONAL [None]
  - CARDIAC MURMUR [None]
